FAERS Safety Report 8471796 (Version 2)
Quarter: 2012Q4

REPORT INFORMATION
  Report Type: 
  Country: GB (occurrence: GB)
  Receive Date: 20120322
  Receipt Date: 20121017
  Transmission Date: 20130627
  Serious: Yes (Other)
  Sender: FDA-Public Use
  Company Number: PHHY2012GB022878

PATIENT
  Age: 23 Year
  Sex: Male
  Weight: 90 kg

DRUGS (7)
  1. GABAPENTIN [Suspect]
     Indication: NEURALGIA
     Dosage: 50 mg, QD
     Route: 048
     Dates: start: 20120227, end: 20120229
  2. GABAPENTIN [Suspect]
     Indication: NEURALGIA
     Dosage: At night
     Route: 048
     Dates: start: 20120227, end: 20120229
  3. EPILIM CHRONO [Concomitant]
     Indication: EPILEPSY
     Dosage: 300 mg, QD
     Route: 048
     Dates: start: 2009
  4. EPILIM CHRONO [Concomitant]
     Dosage: 500 mg, QD
     Route: 048
  5. EPILIM CHRONO [Concomitant]
     Dosage: In the morning
     Route: 048
     Dates: start: 2009
  6. EPILIM CHRONO [Concomitant]
     Dosage: At night
     Route: 048
     Dates: start: 2009
  7. TRAMADOL [Concomitant]
     Indication: PAIN
     Dosage: 50 mg, TID
     Route: 048
     Dates: start: 20120220

REACTIONS (1)
  - VIIth nerve paralysis [Recovered/Resolved]
